FAERS Safety Report 6487114 (Version 19)
Quarter: 2013Q4

REPORT INFORMATION
  Report Type: Spontaneous
  Country: US (occurrence: US)
  Receive Date: 20071210
  Receipt Date: 20131130
  Transmission Date: 20140711
  Serious: Yes (Death, Other)
  Sender: FDA-Public Use
  Company Number: PHEH2007US15441

PATIENT
  Age: 47 Year
  Sex: Female

DRUGS (33)
  1. ZOMETA [Suspect]
     Route: 042
  2. CHEMOTHERAPEUTICS NOS [Concomitant]
  3. RADIATION THERAPY [Concomitant]
  4. SYNTHROID [Concomitant]
     Dosage: 137 MG, QD
     Route: 048
  5. XELODA [Concomitant]
     Dosage: 100 MG, BID
     Route: 048
  6. FEMARA [Concomitant]
     Dosage: 2.5 MG, UNK
  7. AMOXICILLIN [Concomitant]
     Dosage: 500 MG, TID
     Route: 048
  8. PERIOGARD [Concomitant]
     Route: 049
  9. FENTANYL [Concomitant]
     Route: 062
  10. CARDIZEM LA /OLD FORM/ [Concomitant]
     Dosage: 240 MG, QID
     Route: 048
  11. TRAMADOL [Concomitant]
     Route: 048
  12. HYDROCODONE [Concomitant]
     Route: 048
  13. CHLORHEXIDINE DENTAL ^ACO^ [Concomitant]
     Route: 049
  14. AZITHROMYCIN [Concomitant]
     Route: 048
  15. LEVAQUIN [Concomitant]
     Dosage: 500 MG, QD
     Route: 048
  16. PROMETHAZINE HYDROCHLORIDE WITH CODEINE [Concomitant]
     Route: 048
  17. PROCHLORPERAZINE [Concomitant]
     Dosage: 10 MG, TID
     Route: 048
  18. LORAZEPAM [Concomitant]
     Dosage: 0.5 MG, QHS
     Route: 048
  19. GABAPENTIN [Concomitant]
     Route: 048
  20. CIPROFLOXACIN [Concomitant]
     Route: 048
  21. NEUPOGEN [Concomitant]
     Route: 030
  22. CELEBREX [Concomitant]
     Dosage: 200 MG, QD
     Route: 048
  23. BEXTRA [Concomitant]
     Dosage: 20 MG, QD
     Route: 048
  24. AUGMENTIN - SLOW RELEASE [Concomitant]
     Dosage: 200 MG, BID
     Route: 048
  25. NORVASC                                 /DEN/ [Concomitant]
     Dosage: 5 MG, QD
     Route: 048
  26. ZOCOR ^DIECKMANN^ [Concomitant]
  27. ZESTRIL [Concomitant]
  28. MORPHINE [Concomitant]
  29. ADVIL [Concomitant]
  30. ZOLADEX [Concomitant]
  31. GEMZAR [Concomitant]
  32. AVASTIN [Concomitant]
  33. TAMOXIFEN [Concomitant]

REACTIONS (72)
  - Death [Fatal]
  - Osteonecrosis of jaw [Unknown]
  - Injury [Unknown]
  - Pain [Unknown]
  - Anxiety [Unknown]
  - Tooth impacted [Unknown]
  - Paraesthesia oral [Unknown]
  - Hypoaesthesia [Unknown]
  - Bone disorder [Unknown]
  - Anhedonia [Unknown]
  - Metastases to liver [Unknown]
  - Ascites [Unknown]
  - Bronchitis [Unknown]
  - Arthropathy [Unknown]
  - Spinal compression fracture [Unknown]
  - Spinal cord injury [Unknown]
  - Hepatic steatosis [Unknown]
  - Cervical dysplasia [Unknown]
  - Metastases to bone [Unknown]
  - Anaemia [Unknown]
  - Cholelithiasis [Unknown]
  - Impaired healing [Unknown]
  - Hypoaesthesia oral [Unknown]
  - Ovarian enlargement [Unknown]
  - Respiratory tract inflammation [Unknown]
  - Pneumonia [Unknown]
  - Pleural effusion [Unknown]
  - Neck pain [Unknown]
  - Spinal disorder [Unknown]
  - Basal cell carcinoma [Unknown]
  - Rosacea [Recovering/Resolving]
  - Second primary malignancy [Unknown]
  - Kyphosis [Unknown]
  - Muscle spasms [Unknown]
  - Ovarian cyst [Unknown]
  - Skin papilloma [Unknown]
  - Porokeratosis [Unknown]
  - Paronychia [Unknown]
  - Lymphoedema [Unknown]
  - Oedema [Unknown]
  - Lung neoplasm malignant [Unknown]
  - Intervertebral disc protrusion [Unknown]
  - Mastication disorder [Unknown]
  - Alopecia [Unknown]
  - Neuropathy peripheral [Unknown]
  - Osteoarthritis [Unknown]
  - Influenza like illness [Unknown]
  - Stomatitis [Unknown]
  - Fluid retention [Unknown]
  - Dizziness [Unknown]
  - Dyspnoea [Unknown]
  - Pancytopenia [Unknown]
  - Bone deformity [Unknown]
  - Gastrooesophageal reflux disease [Unknown]
  - Fatigue [Unknown]
  - Malaise [Unknown]
  - Back pain [Unknown]
  - Hypercholesterolaemia [Unknown]
  - Spinal pain [Unknown]
  - Arthritis [Unknown]
  - Endometrial hypertrophy [Unknown]
  - Metastases to spine [Unknown]
  - Neutropenia [Unknown]
  - Musculoskeletal chest pain [Unknown]
  - Odynophagia [Unknown]
  - Oropharyngeal pain [Unknown]
  - Breast calcifications [Unknown]
  - Flank pain [Unknown]
  - Hepatomegaly [Unknown]
  - Gait disturbance [Unknown]
  - Hepatic lesion [Unknown]
  - Constipation [Unknown]
